FAERS Safety Report 20127413 (Version 1)
Quarter: 2021Q4

REPORT INFORMATION
  Report Type: Spontaneous
  Country: US (occurrence: None)
  Receive Date: 20211129
  Receipt Date: 20211129
  Transmission Date: 20220303
  Serious: No
  Sender: FDA-Public Use
  Company Number: None

PATIENT
  Age: 56 Year
  Sex: Male
  Weight: 78.75 kg

DRUGS (9)
  1. REGEN-COV [Suspect]
     Active Substance: CASIRIVIMAB\IMDEVIMAB
     Indication: Coronavirus infection
     Dates: start: 20211114, end: 20211114
  2. COENZYME Q10 [Concomitant]
     Active Substance: DIETARY SUPPLEMENT\UBIDECARENONE
  3. DMG [Concomitant]
  4. Multi-vitamins [Concomitant]
  5. EMERGEN-C [Concomitant]
     Active Substance: VITAMINS
  6. HERBALS\SAW PALMETTO [Concomitant]
     Active Substance: HERBALS\SAW PALMETTO
  7. VITAMIN C [Concomitant]
     Active Substance: ASCORBIC ACID
  8. VITAMIN D [Concomitant]
     Active Substance: VITAMIN D NOS
  9. ZINC [Concomitant]
     Active Substance: ZINC

REACTIONS (5)
  - Nausea [None]
  - Fatigue [None]
  - Pruritus [None]
  - Depressed level of consciousness [None]
  - Injection site pruritus [None]

NARRATIVE: CASE EVENT DATE: 20211114
